FAERS Safety Report 19251206 (Version 2)
Quarter: 2021Q2

REPORT INFORMATION
  Report Type: Report from Study
  Country: US (occurrence: US)
  Receive Date: 20210512
  Receipt Date: 20210615
  Transmission Date: 20210717
  Serious: Yes (Other)
  Sender: FDA-Public Use
  Company Number: NVSC2021US098197

PATIENT
  Age: 52 Year
  Sex: Female

DRUGS (1)
  1. ENTRESTO [Suspect]
     Active Substance: SACUBITRIL\VALSARTAN
     Indication: PRODUCT USED FOR UNKNOWN INDICATION
     Dosage: 1 DF, UNKNOWN
     Route: 065
     Dates: start: 202101

REACTIONS (4)
  - General physical condition abnormal [Unknown]
  - Somnolence [Unknown]
  - Cyanosis [Unknown]
  - Palpitations [Unknown]

NARRATIVE: CASE EVENT DATE: 20210427
